FAERS Safety Report 7285119-2 (Version None)
Quarter: 2011Q1

REPORT INFORMATION
  Report Type: 
  Country: None (occurrence: None)
  Receive Date: 20110210
  Receipt Date: 20110201
  Transmission Date: 20110831
  Serious: Yes (Hospitalization)
  Sender: FDA-Public Use
  Company Number: PHHO2011DE01502

PATIENT
  Sex: Male
  Weight: 78 kg

DRUGS (3)
  1. NEORAL [Suspect]
     Dosage: 100
     Dates: start: 20090502
  2. MYCOPHENOLATE MOFETIL [Suspect]
     Dosage: 1000
     Dates: start: 20090502
  3. EVEROLIMUS [Suspect]
     Indication: LUNG TRANSPLANT
     Dosage: 0.25 MG, UNK
     Route: 048
     Dates: start: 20090602

REACTIONS (6)
  - ALVEOLITIS [None]
  - PULMONARY FUNCTION TEST DECREASED [None]
  - COUGH [None]
  - HAEMOPHILUS INFECTION [None]
  - PYREXIA [None]
  - BRONCHOPNEUMONIA [None]
